FAERS Safety Report 7737997-8 (Version None)
Quarter: 2011Q3

REPORT INFORMATION
  Report Type: 
  Country: None (occurrence: None)
  Receive Date: 20110908
  Receipt Date: 20110829
  Transmission Date: 20111222
  Serious: Yes (Hospitalization)
  Sender: FDA-Public Use
  Company Number: US-BAYER-201034903NA

PATIENT
  Age: 50 Year
  Sex: Female
  Weight: 61 kg

DRUGS (13)
  1. YAZ [Suspect]
  2. TETRACYCLINE [Concomitant]
     Dosage: UNK
     Dates: start: 20030801
  3. NAPROSYN [Concomitant]
     Dosage: UNK
     Dates: start: 19930101
  4. FERROUS SULFATE TAB [Concomitant]
     Dosage: UNK
     Dates: start: 20030901
  5. CELEBREX [Concomitant]
     Dosage: UNK
     Dates: start: 20030801
  6. YASMIN [Suspect]
     Indication: PREMENSTRUAL SYNDROME
  7. POTASSIUM CHLORIDE [Concomitant]
     Dosage: UNK
     Dates: start: 19930101
  8. CENTRUM SILVER [Concomitant]
  9. YAZ [Suspect]
     Indication: PREMENSTRUAL SYNDROME
     Dosage: UNK
     Dates: start: 20020101, end: 20080101
  10. YASMIN [Suspect]
     Indication: ACNE
     Dosage: UNK
     Dates: start: 20020101, end: 20080101
  11. LEVAQUIN [Concomitant]
     Dosage: UNK
     Dates: start: 20030901
  12. YASMIN [Suspect]
  13. ALEVE [Concomitant]
     Dosage: UNK
     Dates: start: 19930101

REACTIONS (4)
  - PAIN IN EXTREMITY [None]
  - GENITAL HAEMORRHAGE [None]
  - CHOLELITHIASIS [None]
  - CHOLECYSTITIS [None]
